FAERS Safety Report 24258398 (Version 2)
Quarter: 2024Q3

REPORT INFORMATION
  Report Type: Spontaneous
  Country: JP (occurrence: JP)
  Receive Date: 20240828
  Receipt Date: 20240904
  Transmission Date: 20241017
  Serious: Yes (Death, Life-Threatening)
  Sender: AMGEN
  Company Number: JP-AMGEN-JPNSP2024169760

PATIENT
  Age: 71 Year
  Sex: Female

DRUGS (1)
  1. BLINCYTO [Suspect]
     Active Substance: BLINATUMOMAB
     Indication: B precursor type acute leukaemia
     Dosage: 9 MICROGRAM, CONTINUOUS INTRAVENOUS DRIP INFUSION
     Route: 042
     Dates: start: 20240816, end: 20240821

REACTIONS (7)
  - Blood lactate dehydrogenase increased [Fatal]
  - Blast cell count increased [Fatal]
  - Blood potassium increased [Fatal]
  - Pyrexia [Fatal]
  - Dyspnoea [Fatal]
  - Sepsis [Fatal]
  - B precursor type acute leukaemia [Fatal]

NARRATIVE: CASE EVENT DATE: 20240820
